FAERS Safety Report 23740774 (Version 2)
Quarter: 2024Q3

REPORT INFORMATION
  Report Type: Report from Study
  Country: US (occurrence: US)
  Receive Date: 20240415
  Receipt Date: 20240904
  Transmission Date: 20241017
  Serious: Yes (Other)
  Sender: ABBVIE
  Company Number: US-ABBVIE-5718615

PATIENT
  Sex: Male

DRUGS (2)
  1. LUPRON [Suspect]
     Active Substance: LEUPROLIDE ACETATE
     Indication: Product used for unknown indication
     Route: 065
     Dates: start: 20231227, end: 202404
  2. LUPRON [Suspect]
     Active Substance: LEUPROLIDE ACETATE
     Dosage: FIRST ADMIN DATE: 2024
     Route: 065

REACTIONS (7)
  - Prostate cancer [Unknown]
  - Pollakiuria [Unknown]
  - Mood swings [Unknown]
  - Hot flush [Recovering/Resolving]
  - Urinary retention [Unknown]
  - Night sweats [Recovering/Resolving]
  - Weight increased [Recovering/Resolving]
